FAERS Safety Report 11156165 (Version 1)
Quarter: 2015Q2

REPORT INFORMATION
  Report Type: Spontaneous
  Country: US (occurrence: None)
  Receive Date: 20150601
  Receipt Date: 20150601
  Transmission Date: 20150821
  Serious: Yes (Other)
  Sender: FDA-Public Use
  Company Number: None

PATIENT
  Age: 56 Year
  Sex: Female

DRUGS (7)
  1. BOTOX [Suspect]
     Active Substance: ONABOTULINUMTOXINA
     Indication: SKIN WRINKLING
     Dates: start: 20150504
  2. AMBIEN [Concomitant]
     Active Substance: ZOLPIDEM TARTRATE
  3. VITAMIN D [Concomitant]
     Active Substance: CHOLECALCIFEROL
  4. D5 [Concomitant]
  5. BONIVIA [Concomitant]
  6. REGULAR VITAMINS [Concomitant]
  7. TRAMADO [Concomitant]

REACTIONS (8)
  - Visual acuity reduced [None]
  - Pain [None]
  - Eye haemorrhage [None]
  - Eye disorder [None]
  - Local swelling [None]
  - Eye swelling [None]
  - Eye pain [None]
  - Syncope [None]

NARRATIVE: CASE EVENT DATE: 20150504
